FAERS Safety Report 15147002 (Version 11)
Quarter: 2019Q1

REPORT INFORMATION
  Report Type: Report from Study
  Country: DE (occurrence: DE)
  Receive Date: 20180716
  Receipt Date: 20190227
  Transmission Date: 20190417
  Serious: Yes (Hospitalization, Other)
  Sender: FDA-Public Use
  Company Number: DE-BIOGEN-2018BI00594706

PATIENT
  Age: 53 Year
  Sex: Female
  Weight: 67 kg

DRUGS (14)
  1. FAMPYRA [Suspect]
     Active Substance: DALFAMPRIDINE
     Indication: MUSCLE SPASTICITY
     Route: 048
     Dates: start: 20111214
  2. MAVENCLAD [Suspect]
     Active Substance: CLADRIBINE
     Route: 065
  3. PANTOPRAZOLE [Concomitant]
     Active Substance: PANTOPRAZOLE
     Indication: PROPHYLAXIS
     Route: 065
     Dates: start: 20160113
  4. PANTOPRAZOLE [Concomitant]
     Active Substance: PANTOPRAZOLE
     Route: 065
     Dates: start: 20140312
  5. ZINBRYTA [Suspect]
     Active Substance: DACLIZUMAB
     Indication: RELAPSING-REMITTING MULTIPLE SCLEROSIS
     Route: 058
     Dates: start: 20170906, end: 20180228
  6. FAMPYRA [Suspect]
     Active Substance: DALFAMPRIDINE
     Route: 048
     Dates: start: 20120607
  7. MAVENCLAD [Suspect]
     Active Substance: CLADRIBINE
     Indication: SECONDARY PROGRESSIVE MULTIPLE SCLEROSIS
     Route: 048
     Dates: start: 20180601, end: 20180602
  8. MAVENCLAD [Suspect]
     Active Substance: CLADRIBINE
     Dosage: FIRST WEEK THERAPY: TWO TABLETS ON DAY 1 AND ONE TABLET ON DAYS 2 AND 3
     Route: 048
     Dates: start: 20180601, end: 20180603
  9. EUTIROX [Concomitant]
     Active Substance: LEVOTHYROXINE SODIUM
     Indication: THYROID MALFORMATION
     Route: 065
     Dates: start: 201106
  10. BACLOFEN. [Concomitant]
     Active Substance: BACLOFEN
     Indication: MUSCLE SPASTICITY
     Route: 065
     Dates: start: 20140430
  11. FAMPYRA [Suspect]
     Active Substance: DALFAMPRIDINE
     Route: 048
     Dates: start: 20140624
  12. ELTIROX [Concomitant]
     Indication: THYROID MALFORMATION
     Route: 065
     Dates: start: 201106
  13. BACLOFEN. [Concomitant]
     Active Substance: BACLOFEN
     Dosage: 0.5 DAYS
     Route: 048
  14. MODAFINIL. [Concomitant]
     Active Substance: MODAFINIL
     Indication: FATIGUE
     Route: 065
     Dates: start: 20140430

REACTIONS (14)
  - Drug hypersensitivity [Not Recovered/Not Resolved]
  - Hypersensitivity [Recovered/Resolved]
  - Peripheral swelling [Unknown]
  - Flank pain [Unknown]
  - Abdominal pain [Recovered/Resolved]
  - Madarosis [Unknown]
  - Rash pustular [Recovered/Resolved]
  - Swelling face [Recovered/Resolved]
  - Alopecia [Recovered/Resolved]
  - Decreased appetite [Unknown]
  - Pain [Not Recovered/Not Resolved]
  - Dermatitis allergic [Recovered/Resolved]
  - Splenomegaly [Recovered/Resolved]
  - Headache [Recovered/Resolved]

NARRATIVE: CASE EVENT DATE: 201805
